FAERS Safety Report 5070012-6 (Version None)
Quarter: 2006Q3

REPORT INFORMATION
  Report Type: 
  Country: None (occurrence: None)
  Receive Date: 20060714
  Receipt Date: 20060406
  Transmission Date: 20061208
  Serious: No
  Sender: FDA-Public Use
  Company Number: 2006SP001578

PATIENT
  Age: 75 Year
  Sex: Female
  Weight: 86.1834 kg

DRUGS (6)
  1. LUNESTA [Suspect]
     Indication: INSOMNIA
     Dosage: 2 MG; HS; ORAL; SEE IMAGE
     Route: 048
     Dates: start: 20060101, end: 20060101
  2. LUNESTA [Suspect]
     Indication: INSOMNIA
     Dosage: 2 MG; HS; ORAL; SEE IMAGE
     Route: 048
     Dates: start: 20050401
  3. ZETIA [Concomitant]
  4. AMLODIPINE [Concomitant]
  5. ATENOLOL [Concomitant]
  6. PROCARDIA [Concomitant]

REACTIONS (3)
  - AMNESIA [None]
  - HEADACHE [None]
  - NAUSEA [None]
